FAERS Safety Report 23101653 (Version 1)
Quarter: 2023Q4

REPORT INFORMATION
  Report Type: Spontaneous
  Country: TR (occurrence: TR)
  Receive Date: 20231025
  Receipt Date: 20231025
  Transmission Date: 20240110
  Serious: Yes (Hospitalization, Other)
  Sender: FDA-Public Use
  Company Number: TR-ABBVIE-5463418

PATIENT

DRUGS (1)
  1. HUMIRA [Suspect]
     Active Substance: ADALIMUMAB
     Indication: Product used for unknown indication
     Route: 058
     Dates: start: 20180508

REACTIONS (12)
  - Pustule [Unknown]
  - Psoriasis [Unknown]
  - Therapeutic product effect decreased [Unknown]
  - Psoriasis [Unknown]
  - Scrotal oedema [Unknown]
  - Surgery [Unknown]
  - Skin lesion [Recovered/Resolved]
  - Skin lesion inflammation [Recovered/Resolved]
  - Skin lesion inflammation [Unknown]
  - Skin plaque [Unknown]
  - Plastic surgery [Unknown]
  - Skin lesion [Unknown]

NARRATIVE: CASE EVENT DATE: 20180508
